FAERS Safety Report 10186448 (Version 1)
Quarter: 2014Q2

REPORT INFORMATION
  Report Type: Spontaneous
  Country: US (occurrence: US)
  Receive Date: 20140521
  Receipt Date: 20140521
  Transmission Date: 20141212
  Serious: No
  Sender: FDA-Public Use
  Company Number: US-ASTRAZENECA-2013SE78676

PATIENT
  Age: 77 Year
  Sex: Female
  Weight: 83.9 kg

DRUGS (6)
  1. PULMICORT FLEXHALER [Suspect]
     Indication: ASTHMA
     Route: 055
  2. HYDROCHLOROTHIAZIDE (NON AZ PRODUCT) [Suspect]
     Indication: FLUID RETENTION
     Dosage: 50MG 0.5 DAILY
  3. CLONADINE [Concomitant]
     Indication: HYPERTENSION
  4. DIOVAN [Concomitant]
     Indication: HYPERTENSION
  5. METOPROLOL TARTRATE [Concomitant]
     Indication: HYPERTENSION
  6. SINGULAIR [Concomitant]
     Indication: ASTHMA

REACTIONS (11)
  - Malaise [Recovered/Resolved]
  - Rhinorrhoea [Recovered/Resolved]
  - Sinusitis [Unknown]
  - Bronchitis [Unknown]
  - Paranasal sinus hypersecretion [Unknown]
  - Nasopharyngitis [Unknown]
  - Cough [Recovered/Resolved]
  - Rash [Unknown]
  - Drug dose omission [Unknown]
  - Drug ineffective [Unknown]
  - Intentional product misuse [Unknown]
